FAERS Safety Report 8113201-6 (Version None)
Quarter: 2012Q1

REPORT INFORMATION
  Report Type: 
  Country: None (occurrence: None)
  Receive Date: 20120203
  Receipt Date: 20120124
  Transmission Date: 20120608
  Serious: Yes (Other)
  Sender: FDA-Public Use
  Company Number: PHHY2011AR48025

PATIENT
  Sex: Male

DRUGS (1)
  1. EXFORGE [Suspect]
     Indication: HYPERTENSION
     Dosage: 160 MG VALS AND 05 MG AMLO, 2 DF, DAILY
     Dates: end: 20110531

REACTIONS (4)
  - ABDOMINAL PAIN [None]
  - HERNIA [None]
  - OESOPHAGEAL DISORDER [None]
  - ABDOMINAL DISCOMFORT [None]
